FAERS Safety Report 10236439 (Version 1)
Quarter: 2014Q2

REPORT INFORMATION
  Report Type: Spontaneous
  Country: JP (occurrence: JP)
  Receive Date: 20140613
  Receipt Date: 20140613
  Transmission Date: 20141212
  Serious: Yes (Other)
  Sender: FDA-Public Use
  Company Number: JP-GILEAD-2014-0104906

PATIENT
  Age: 35 Year
  Sex: Male

DRUGS (11)
  1. TRUVADA [Suspect]
     Indication: HIV INFECTION
     Route: 048
  2. ISENTRESS [Suspect]
     Indication: HIV INFECTION
     Route: 048
  3. ETOPOSIDE [Concomitant]
     Indication: BURKITT^S LYMPHOMA
     Dosage: UNK
  4. DOXORUBICIN HYDROCHLORIDE [Concomitant]
     Indication: BURKITT^S LYMPHOMA
     Dosage: UNK
  5. DOXORUBICIN HYDROCHLORIDE [Concomitant]
     Route: 041
  6. CYCLOPHOSPHAMIDE [Concomitant]
     Indication: BURKITT^S LYMPHOMA
     Dosage: UNK
  7. VINCRISTINE SULFATE [Concomitant]
     Indication: BURKITT^S LYMPHOMA
     Dosage: UNK
  8. PREDNISOLONE ACETATE [Concomitant]
     Indication: BURKITT^S LYMPHOMA
     Dosage: UNK
     Route: 041
  9. RITUXIMAB [Concomitant]
     Indication: BURKITT^S LYMPHOMA
     Dosage: UNK
  10. METHOTREXATE [Concomitant]
     Indication: BURKITT^S LYMPHOMA
     Dosage: UNK
  11. CYTARABINE [Concomitant]
     Indication: BURKITT^S LYMPHOMA
     Dosage: UNK

REACTIONS (1)
  - Encephalitis cytomegalovirus [Unknown]
